FAERS Safety Report 5078926-8 (Version None)
Quarter: 2006Q3

REPORT INFORMATION
  Report Type: 
  Country: None (occurrence: None)
  Receive Date: 20060809
  Receipt Date: 20060809
  Transmission Date: 20061208
  Serious: No
  Sender: FDA-Public Use
  Company Number: None

PATIENT
  Age: 33 Year
  Sex: Female
  Weight: 74.8435 kg

DRUGS (2)
  1. EFFEXOR [Suspect]
     Indication: DEPRESSION
     Dosage: 80MG ONCE A DAY PO
     Route: 048
     Dates: start: 20040804
  2. ORTHO TRI CYCLENE [Concomitant]

REACTIONS (10)
  - ANOREXIA [None]
  - CHILLS [None]
  - DIARRHOEA [None]
  - DIZZINESS [None]
  - DRUG DOSE OMISSION [None]
  - EAR DISCOMFORT [None]
  - HYPERHIDROSIS [None]
  - NAUSEA [None]
  - VISUAL DISTURBANCE [None]
  - VOMITING [None]
